FAERS Safety Report 4846444-5 (Version None)
Quarter: 2005Q4

REPORT INFORMATION
  Report Type: 
  Country: None (occurrence: None)
  Receive Date: 20051202
  Receipt Date: 20051121
  Transmission Date: 20060501
  Serious: Yes (Other)
  Sender: FDA-Public Use
  Company Number: 2005159334

PATIENT
  Age: 70 Year
  Sex: Male
  Weight: 94.8018 kg

DRUGS (25)
  1. DILANTIN KAPSEAL [Suspect]
     Indication: POST-TRAUMATIC EPILEPSY
     Dosage: 300 MG (300  MG, 1 IN 1 D)
     Dates: start: 19870101
  2. ESTER-C (CALCIUM ASCORBATE) [Concomitant]
  3. CENTRUM (MINERALS NOS, VITAMINS NOS) [Concomitant]
  4. ASPIRIN [Concomitant]
  5. GRAPE SEED EXTRACT (VITIS VINIFERA EXTRACT) [Concomitant]
  6. GUGULIPID (COMMIPHORA MUKUL) [Concomitant]
  7. BILBERRY (MYRTILLUS) [Concomitant]
  8. COENZYME Q10 [Concomitant]
  9. SAW PALMETTO (SAW PALMETTO) [Concomitant]
  10. GINKO BILOBA (GINKGO BILOBA) [Concomitant]
  11. ASPARTATE POTASSIUM W/MAGNESIUM ASPARTATE (ASPARTATE POTASSIUM, MAGNES [Concomitant]
  12. CALCIUM (CALCIUM) [Concomitant]
  13. GINSENG (GINSENG) [Concomitant]
  14. OLIVE LEAVES EXTRACT (OLIVE LEAVES EXTRACT) [Concomitant]
  15. METHYLSULFONYLMETHANE (METHYLSUFONYLMETHANE) [Concomitant]
  16. SUDAFED (PSEUDOEPHEDRINE) [Concomitant]
  17. ALL OTHER THERAPEUTIC PRODUCTS (ALL OTHER THERAPEUTIC PRODUCTS) [Concomitant]
  18. ATENOLOL [Concomitant]
  19. HYDROCHLOROTHIAZIDE/TRIAMTERENE (HYDROCHLOROTHIAZIDE, TRIAMTERENE) [Concomitant]
  20. SELENIUM (SELENIUM) [Concomitant]
  21. ENALAPRIL MALEATE [Concomitant]
  22. SELENOMETHIONINE (75 SE) (SELENOMETHIONINE (75 SE)) [Concomitant]
  23. MAGNESIUM (MAGNESIUM) [Concomitant]
  24. B-50 (VITAMIN B NOS) [Concomitant]
  25. RHINOCORT [Concomitant]

REACTIONS (2)
  - ANTICONVULSANT DRUG LEVEL BELOW THERAPEUTIC [None]
  - CONVULSION [None]
